FAERS Safety Report 9984082 (Version 1)
Quarter: 2014Q1

REPORT INFORMATION
  Report Type: Spontaneous
  Country: US (occurrence: US)
  Receive Date: 20140307
  Receipt Date: 20140307
  Transmission Date: 20141002
  Serious: No
  Sender: FDA-Public Use
  Company Number: US-ABBVIE-13P-163-1183100-00

PATIENT
  Age: 48 Year
  Sex: Male
  Weight: 86.26 kg

DRUGS (4)
  1. HUMIRA [Suspect]
     Indication: CROHN^S DISEASE
     Route: 058
     Dates: start: 201203, end: 201203
  2. HUMIRA [Suspect]
     Route: 058
     Dates: start: 201203, end: 201203
  3. HUMIRA [Suspect]
     Route: 058
     Dates: start: 201304
  4. ATENOLOL [Concomitant]
     Indication: HYPERTENSION

REACTIONS (1)
  - Rash [Not Recovered/Not Resolved]
